FAERS Safety Report 11917800 (Version 2)
Quarter: 2016Q4

REPORT INFORMATION
  Report Type: Report from Study
  Country: US (occurrence: US)
  Receive Date: 20160114
  Receipt Date: 20161118
  Transmission Date: 20170206
  Serious: Yes (Death, Hospitalization)
  Sender: FDA-Public Use
  Company Number: US-TARO-2016TAR00025

PATIENT
  Age: 72 Year
  Sex: Male

DRUGS (1)
  1. ALDARA [Suspect]
     Active Substance: IMIQUIMOD
     Indication: ACTINIC KERATOSIS
     Dosage: 250 MG, 3X/WEEK
     Route: 061
     Dates: start: 20150826, end: 20151113

REACTIONS (4)
  - Myocardial infarction [Fatal]
  - Renal colic [None]
  - Back pain [Unknown]
  - Acute kidney injury [Unknown]

NARRATIVE: CASE EVENT DATE: 20151230
